FAERS Safety Report 7716966-8 (Version None)
Quarter: 2011Q3

REPORT INFORMATION
  Report Type: 
  Country: None (occurrence: None)
  Receive Date: 20110829
  Receipt Date: 20110818
  Transmission Date: 20111222
  Serious: Yes (Hospitalization, Disabling, Other)
  Sender: FDA-Public Use
  Company Number: US-ASTRAZENECA-2010SE52102

PATIENT
  Age: 68 Year
  Sex: Female

DRUGS (3)
  1. NEXIUM [Suspect]
     Indication: DYSPLASIA
     Route: 048
     Dates: start: 20040114
  2. PREVACID [Concomitant]
  3. NEXIUM [Suspect]
     Indication: GASTROOESOPHAGEAL REFLUX DISEASE
     Route: 048
     Dates: start: 20040114

REACTIONS (9)
  - PROCEDURAL SITE REACTION [None]
  - MEDICAL DEVICE REMOVAL [None]
  - BLOOD DISORDER [None]
  - ARTHROPATHY [None]
  - FALL [None]
  - COAGULOPATHY [None]
  - KNEE ARTHROPLASTY [None]
  - NEOPLASM MALIGNANT [None]
  - ARTHRALGIA [None]
